FAERS Safety Report 21020455 (Version 1)
Quarter: 2022Q2

REPORT INFORMATION
  Report Type: Other
  Country: GB (occurrence: GB)
  Receive Date: 20220629
  Receipt Date: 20220629
  Transmission Date: 20220720
  Serious: Yes (Other)
  Sender: FDA-Public Use
  Company Number: None

PATIENT
  Age: 75 Year
  Sex: Female
  Weight: 115 kg

DRUGS (19)
  1. PREDNISOLONE [Suspect]
     Active Substance: PREDNISOLONE
     Indication: Product used for unknown indication
     Dosage: 5 MILLIGRAM
     Route: 065
     Dates: start: 20191130
  2. CALCIUM CARBONATE\CHOLECALCIFEROL [Concomitant]
     Active Substance: CALCIUM CARBONATE\CHOLECALCIFEROL
     Indication: Product used for unknown indication
     Dosage: 1 TABLETS, BID (VITAMIN D REPLACEMENT)
     Route: 065
     Dates: start: 20211202
  3. FLUTICASONE FUROATE [Concomitant]
     Active Substance: FLUTICASONE FUROATE
     Indication: Product used for unknown indication
     Dosage: UNK (PLEASE USE THIS SPRAY AS SPARINGLY AS POSSIBLE (NOT SUITABLE FOR LONG TERM USE))
     Route: 065
     Dates: start: 20220523
  4. CLOTRIMAZOLE [Concomitant]
     Active Substance: CLOTRIMAZOLE
     Indication: Product used for unknown indication
     Dosage: 1 DOSAGE FORM, BID (APPLY SPARINGLY TWICE DAILY)
     Route: 061
     Dates: start: 20220523
  5. CARBOXYMETHYLCELLULOSE SODIUM [Concomitant]
     Active Substance: CARBOXYMETHYLCELLULOSE SODIUM
     Indication: Product used for unknown indication
     Dosage: 1 DOSAGE FORM (INSTIL ONE DROP AS DIRECTED BY OPHTHALMOLOGY)
     Route: 047
     Dates: start: 20211202
  6. DAPAGLIFLOZIN [Concomitant]
     Active Substance: DAPAGLIFLOZIN
     Indication: Product used for unknown indication
     Dosage: 1 DOSAGE FORM PER DAY
     Route: 065
     Dates: start: 20211202
  7. DOXAZOSIN [Concomitant]
     Active Substance: DOXAZOSIN MESYLATE
     Indication: Product used for unknown indication
     Dosage: UNK (TAKE 3 DAILY)
     Route: 065
     Dates: start: 20211202
  8. EZETIMIBE [Concomitant]
     Active Substance: EZETIMIBE
     Indication: Product used for unknown indication
     Dosage: 1 DOSAGE FORM PER DAY
     Route: 065
     Dates: start: 20211202
  9. GAVISCON ADVANCE [POTASSIUM BICARBONATE;SODIUM ALGINATE] [Concomitant]
     Indication: Product used for unknown indication
     Dosage: UNK, QID (5ML - 10ML 4 TIMES/DAY)
     Route: 065
     Dates: start: 20211202
  10. INSULIN HUMAN [Concomitant]
     Active Substance: INSULIN HUMAN
     Indication: Product used for unknown indication
     Dosage: UNK (USE  AS  DN  ADVICED  INCREASING DOSE. 36U MANE...)
     Route: 065
     Dates: start: 20211202
  11. HYDROCORTISONE [Concomitant]
     Active Substance: HYDROCORTISONE
     Indication: Product used for unknown indication
     Dosage: 1 DOSAGE FORM, BID (APPLY SPARINGLY TWICE DAILY)
     Route: 065
     Dates: start: 20220325, end: 20220401
  12. HYALURONATE SODIUM [Concomitant]
     Active Substance: HYALURONATE SODIUM
     Indication: Product used for unknown indication
     Dosage: UNK (USE AS DIRECTED BY OPHTHALMOLOGY)
     Route: 065
     Dates: start: 20211202
  13. LANSOPRAZOLE [Concomitant]
     Active Substance: LANSOPRAZOLE
     Indication: Ill-defined disorder
     Dosage: 1 DOSAGE FORM PER DAY (EVERY DAY)
     Route: 065
     Dates: start: 20211202
  14. METFORMIN [Concomitant]
     Active Substance: METFORMIN HYDROCHLORIDE
     Indication: Product used for unknown indication
     Dosage: 1 DOSAGE FORM BID (ONE WITH BREAKFAST AND ONE WITH EVENING MEAL)
     Route: 065
     Dates: start: 20211202
  15. NITROFURANTOIN [Concomitant]
     Active Substance: NITROFURANTOIN
     Indication: Ill-defined disorder
     Dosage: 1 DOSAGE FORM, BID
     Route: 065
     Dates: start: 20220325, end: 20220328
  16. OLOPATADINE [Concomitant]
     Active Substance: OLOPATADINE
     Indication: Product used for unknown indication
     Dosage: 2 DROP
     Route: 065
     Dates: start: 20211202
  17. ACETAMINOPHEN [Concomitant]
     Active Substance: ACETAMINOPHEN
     Indication: Product used for unknown indication
     Dosage: 8 DOSAGE FORM PER DAY
     Route: 065
     Dates: start: 20220506, end: 20220603
  18. PREGABALIN [Concomitant]
     Active Substance: PREGABALIN
     Indication: Product used for unknown indication
     Dosage: 2 DOSAGE FORM PER DAY
     Route: 065
     Dates: start: 20211202
  19. RAMIPRIL [Concomitant]
     Active Substance: RAMIPRIL
     Indication: Product used for unknown indication
     Dosage: 1 DOSAGE FORM PER DAY
     Route: 065
     Dates: start: 20211202

REACTIONS (4)
  - Swollen tongue [Recovered/Resolved]
  - Pruritus [Unknown]
  - Eye disorder [Unknown]
  - Sensory disturbance [Unknown]

NARRATIVE: CASE EVENT DATE: 20220617
